FAERS Safety Report 7797692-6 (Version None)
Quarter: 2011Q4

REPORT INFORMATION
  Report Type: 
  Country: None (occurrence: None)
  Receive Date: 20111005
  Receipt Date: 20110922
  Transmission Date: 20120403
  Serious: Yes (Hospitalization)
  Sender: FDA-Public Use
  Company Number: PHHY2011BR58672

PATIENT
  Sex: Female

DRUGS (2)
  1. FORMOTEROL FUMARATE [Suspect]
     Indication: CHRONIC SINUSITIS
     Dosage: 1 DF, BID
  2. FORMOTEROL FUMARATE [Suspect]
     Indication: PNEUMONIA

REACTIONS (6)
  - DYSPHONIA [None]
  - DIVERTICULITIS [None]
  - DERMATITIS [None]
  - RASH [None]
  - DRY THROAT [None]
  - DIARRHOEA [None]
